FAERS Safety Report 25621497 (Version 1)
Quarter: 2025Q3

REPORT INFORMATION
  Report Type: Spontaneous
  Country: GB (occurrence: GB)
  Receive Date: 20250730
  Receipt Date: 20250730
  Transmission Date: 20251020
  Serious: Yes (Disabling, Other)
  Sender: RANBAXY
  Company Number: GB-SUN PHARMACEUTICAL INDUSTRIES LTD-2025RR-515909

PATIENT
  Age: 59 Year
  Sex: Female
  Weight: 47 kg

DRUGS (9)
  1. BACLOFEN [Suspect]
     Active Substance: BACLOFEN
     Indication: Product used for unknown indication
     Route: 065
  2. DIAZEPAM [Suspect]
     Active Substance: DIAZEPAM
     Indication: Product used for unknown indication
     Route: 065
  3. GABAPENTIN [Suspect]
     Active Substance: GABAPENTIN
     Indication: Product used for unknown indication
     Route: 065
  4. TRAMADOL [Suspect]
     Active Substance: TRAMADOL
     Indication: Product used for unknown indication
     Dosage: 150 MILLIGRAM, TID
     Route: 065
  5. PREDNISOLONE [Suspect]
     Active Substance: PREDNISOLONE
     Indication: Product used for unknown indication
     Route: 065
  6. AMITRIPTYLINE [Suspect]
     Active Substance: AMITRIPTYLINE
     Indication: Product used for unknown indication
     Route: 065
  7. LANSOPRAZOLE [Concomitant]
     Active Substance: LANSOPRAZOLE
     Indication: Product used for unknown indication
     Dosage: 30 MILLIGRAM, DAILY
     Route: 065
  8. PAROXETINE [Concomitant]
     Active Substance: PAROXETINE
     Indication: Product used for unknown indication
     Route: 065
  9. COCODAMOL [Concomitant]
     Active Substance: ACETAMINOPHEN\CODEINE PHOSPHATE
     Indication: Product used for unknown indication
     Route: 065

REACTIONS (27)
  - Aggression [Unknown]
  - Anger [Unknown]
  - Hallucination [Unknown]
  - Insomnia [Unknown]
  - Abnormal dreams [Unknown]
  - Condition aggravated [Unknown]
  - Mania [Unknown]
  - Substance-induced psychotic disorder [Unknown]
  - Amnesia [Unknown]
  - Fall [Unknown]
  - Pain [Unknown]
  - Mobility decreased [Unknown]
  - Cataract [Unknown]
  - Agitation [Unknown]
  - Trigeminal neuralgia [Unknown]
  - Tearfulness [Unknown]
  - Dizziness [Unknown]
  - Nausea [Unknown]
  - Vomiting [Unknown]
  - Headache [Unknown]
  - Confusional state [Unknown]
  - Mood swings [Unknown]
  - Inappropriate affect [Unknown]
  - Crying [Unknown]
  - Thoracic outlet syndrome [Unknown]
  - Thoracic radiculopathy [Unknown]
  - Thoracic outlet syndrome [Unknown]

NARRATIVE: CASE EVENT DATE: 20240201
